FAERS Safety Report 21489925 (Version 1)
Quarter: 2022Q4

REPORT INFORMATION
  Report Type: Spontaneous
  Country: IN (occurrence: IN)
  Receive Date: 20221021
  Receipt Date: 20221021
  Transmission Date: 20230113
  Serious: Yes (Death, Life-Threatening, Hospitalization, Other)
  Sender: FDA-Public Use
  Company Number: IN-MLMSERVICE-20221010-3759773-1

PATIENT
  Age: 50 Year
  Sex: Female

DRUGS (1)
  1. METHOTREXATE [Interacting]
     Active Substance: METHOTREXATE
     Indication: Arthralgia

REACTIONS (10)
  - Myelosuppression [Fatal]
  - Product prescribing issue [Fatal]
  - Hypokalaemia [Fatal]
  - Drug interaction [Fatal]
  - Pancytopenia [Fatal]
  - Rectal haemorrhage [Fatal]
  - Toxicity to various agents [Fatal]
  - SJS-TEN overlap [Fatal]
  - Staphylococcal infection [Fatal]
  - Acute kidney injury [Fatal]
